FAERS Safety Report 25598340 (Version 2)
Quarter: 2025Q3

REPORT INFORMATION
  Report Type: Spontaneous
  Country: CH (occurrence: CH)
  Receive Date: 20250723
  Receipt Date: 20250829
  Transmission Date: 20251021
  Serious: Yes (Other)
  Sender: MERCK SHARP & DOHME LLC
  Company Number: CH-009507513-2310032

PATIENT

DRUGS (6)
  1. PEMBROLIZUMAB [Suspect]
     Active Substance: PEMBROLIZUMAB
     Indication: Gastric cancer
     Dates: start: 2023
  2. DOCETAXEL [Suspect]
     Active Substance: DOCETAXEL
     Indication: Gastric cancer
     Dates: start: 20230725
  3. CAPECITABINE\OXALIPLATIN [Suspect]
     Active Substance: CAPECITABINE\OXALIPLATIN
     Indication: Gastric cancer
     Dates: start: 20250127
  4. FLUOROURACIL [Suspect]
     Active Substance: FLUOROURACIL
  5. LEUCOVORIN [Suspect]
     Active Substance: LEUCOVORIN\LEUCOVORIN CALCIUM
  6. OXALIPLATIN [Suspect]
     Active Substance: OXALIPLATIN

REACTIONS (8)
  - Gastric cancer recurrent [Unknown]
  - Pneumonitis [Unknown]
  - Lymphadenectomy [Unknown]
  - Therapy partial responder [Unknown]
  - Gastrectomy [Unknown]
  - Malignant neoplasm progression [Unknown]
  - Lung opacity [Unknown]
  - Therapy partial responder [Unknown]

NARRATIVE: CASE EVENT DATE: 20230925
